FAERS Safety Report 4786877-9 (Version None)
Quarter: 2005Q4

REPORT INFORMATION
  Report Type: 
  Country: None (occurrence: None)
  Receive Date: 20051004
  Receipt Date: 20050928
  Transmission Date: 20060501
  Serious: Yes (Other)
  Sender: FDA-Public Use
  Company Number: 2005UW14474

PATIENT
  Age: 48 Year
  Sex: Female

DRUGS (5)
  1. SEROQUEL [Suspect]
     Route: 048
     Dates: start: 20050823
  2. CAMPRAL [Suspect]
     Indication: ALCOHOLISM
     Route: 048
     Dates: start: 20050826
  3. KLONOPIN [Concomitant]
  4. XANAX [Concomitant]
  5. ATENOLOL [Concomitant]

REACTIONS (2)
  - DRUG INTERACTION [None]
  - MANIA [None]
